FAERS Safety Report 16211927 (Version 3)
Quarter: 2020Q1

REPORT INFORMATION
  Report Type: Spontaneous
  Country: FR (occurrence: FR)
  Receive Date: 20190418
  Receipt Date: 20200131
  Transmission Date: 20200409
  Serious: Yes (Hospitalization, Other)
  Sender: FDA-Public Use
  Company Number: FR-ASTRAZENECA-2019SE57855

PATIENT
  Age: 80 Year
  Sex: Male
  Weight: 78 kg

DRUGS (2)
  1. IMFINZI [Suspect]
     Active Substance: DURVALUMAB
     Indication: NON-SMALL CELL LUNG CANCER STAGE III
     Dosage: 900.0MG UNKNOWN
     Route: 042
     Dates: start: 20190311, end: 20190311
  2. TAGRISSO [Concomitant]
     Active Substance: OSIMERTINIB
     Indication: NON-SMALL CELL LUNG CANCER METASTATIC
     Dosage: 80.0MG UNKNOWN
     Dates: start: 20190515

REACTIONS (8)
  - Radiation pneumonitis [Recovering/Resolving]
  - Malignant neoplasm progression [Unknown]
  - General physical condition abnormal [Recovering/Resolving]
  - Overdose [Recovered/Resolved]
  - Appendiceal abscess [Recovering/Resolving]
  - Anaemia [Recovering/Resolving]
  - Off label use [Recovered/Resolved]
  - Diarrhoea [Recovering/Resolving]

NARRATIVE: CASE EVENT DATE: 201903
